FAERS Safety Report 11254316 (Version 1)
Quarter: 2015Q3

REPORT INFORMATION
  Report Type: Spontaneous
  Country: US (occurrence: None)
  Receive Date: 20150708
  Receipt Date: 20150708
  Transmission Date: 20151125
  Serious: No
  Sender: FDA-Public Use
  Company Number: None

PATIENT
  Age: 82 Year
  Sex: Female
  Weight: 51.71 kg

DRUGS (6)
  1. HYDROCHLOROTHIAZIDE. [Concomitant]
     Active Substance: HYDROCHLOROTHIAZIDE
  2. AMLODIPINE BESYLATE. [Concomitant]
     Active Substance: AMLODIPINE BESYLATE
  3. LEVOFLOXACIN. [Suspect]
     Active Substance: LEVOFLOXACIN
     Indication: NASOPHARYNGITIS
     Dosage: 1 TABLET
     Route: 048
     Dates: start: 20150615, end: 20150617
  4. ENALAPRIL [Concomitant]
     Active Substance: ENALAPRIL
  5. LEVOFLOXACIN. [Suspect]
     Active Substance: LEVOFLOXACIN
     Indication: OROPHARYNGEAL PAIN
     Dosage: 1 TABLET
     Route: 048
     Dates: start: 20150615, end: 20150617
  6. ASA [Concomitant]
     Active Substance: ASPIRIN

REACTIONS (9)
  - Thirst [None]
  - Nausea [None]
  - Myalgia [None]
  - Dizziness [None]
  - Abdominal pain upper [None]
  - Insomnia [None]
  - Musculoskeletal pain [None]
  - Arthralgia [None]
  - Muscle spasms [None]
